FAERS Safety Report 8906391 (Version 1)
Quarter: 2012Q4

REPORT INFORMATION
  Report Type: Spontaneous
  Country: US (occurrence: None)
  Receive Date: 20121109
  Receipt Date: 20121109
  Transmission Date: 20130627
  Serious: Yes (Other)
  Sender: FDA-Public Use
  Company Number: None

PATIENT
  Age: 59 Year
  Sex: Female
  Weight: 63.5 kg

DRUGS (1)
  1. SECONAL SODIUM [Suspect]
     Indication: INSOMNIA
     Route: 048
     Dates: start: 20120328, end: 20120430

REACTIONS (6)
  - Drug ineffective [None]
  - Fatigue [None]
  - Poor quality sleep [None]
  - Insomnia [None]
  - Product colour issue [None]
  - Product quality issue [None]
